FAERS Safety Report 7440844-5 (Version None)
Quarter: 2011Q2

REPORT INFORMATION
  Report Type: 
  Country: None (occurrence: None)
  Receive Date: 20110427
  Receipt Date: 20110425
  Transmission Date: 20111010
  Serious: Yes (Other)
  Sender: FDA-Public Use
  Company Number: JP-PFIZER INC-2011089032

PATIENT
  Sex: Female

DRUGS (2)
  1. INSULIN [Concomitant]
  2. LYRICA [Suspect]
     Dosage: UNK
     Route: 048
     Dates: start: 20110421

REACTIONS (3)
  - COGNITIVE DISORDER [None]
  - DIZZINESS [None]
  - SOMNOLENCE [None]
